FAERS Safety Report 19714969 (Version 1)
Quarter: 2021Q3

REPORT INFORMATION
  Report Type: Spontaneous
  Country: DE (occurrence: DE)
  Receive Date: 20210818
  Receipt Date: 20210818
  Transmission Date: 20211014
  Serious: Yes (Other)
  Sender: FDA-Public Use
  Company Number: DE-AUROBINDO-AUR-APL-2015-04599

PATIENT
  Sex: Female

DRUGS (2)
  1. OLANZAPINE. [Suspect]
     Active Substance: OLANZAPINE
     Indication: PRODUCT USED FOR UNKNOWN INDICATION
     Dosage: 20 MG, DAILY
     Route: 048
     Dates: start: 20150418
  2. OLANZAPINE. [Suspect]
     Active Substance: OLANZAPINE
     Dosage: 20 MG, UNK
     Route: 048
     Dates: start: 20150509

REACTIONS (16)
  - Epistaxis [Unknown]
  - Micturition urgency [Unknown]
  - Nausea [Unknown]
  - Weight increased [Unknown]
  - Increased appetite [Unknown]
  - Visual impairment [Unknown]
  - Hormone level abnormal [Unknown]
  - Dry mouth [Unknown]
  - Nightmare [Unknown]
  - Dizziness [Unknown]
  - Sleep disorder [Unknown]
  - Bladder disorder [Unknown]
  - Balance disorder [Unknown]
  - Post procedural complication [Unknown]
  - Rash [Unknown]
  - Vomiting [Unknown]
